FAERS Safety Report 18306575 (Version 1)
Quarter: 2020Q3

REPORT INFORMATION
  Report Type: Spontaneous
  Country: US (occurrence: US)
  Receive Date: 20200923
  Receipt Date: 20200923
  Transmission Date: 20201103
  Serious: Yes (Death)
  Sender: FDA-Public Use
  Company Number: None

PATIENT
  Age: 65 Year
  Sex: Female
  Weight: 80.29 kg

DRUGS (1)
  1. REMDESIVIR. [Suspect]
     Active Substance: REMDESIVIR

REACTIONS (8)
  - Respiratory distress [None]
  - Tachycardia [None]
  - Agitation [None]
  - General physical health deterioration [None]
  - Atrial fibrillation [None]
  - Condition aggravated [None]
  - Tachypnoea [None]
  - Dyspnoea [None]

NARRATIVE: CASE EVENT DATE: 20200922
